FAERS Safety Report 7877103-2 (Version None)
Quarter: 2011Q4

REPORT INFORMATION
  Report Type: 
  Country: None (occurrence: None)
  Receive Date: 20111031
  Receipt Date: 20111020
  Transmission Date: 20120403
  Serious: Yes (Other)
  Sender: FDA-Public Use
  Company Number: HU-ABBOTT-11P-076-0869405-00

PATIENT
  Age: 18 Year
  Sex: Male

DRUGS (6)
  1. OLANZAPINE [Suspect]
     Indication: SCHIZOPHRENIA
     Route: 065
     Dates: start: 20090701, end: 20091001
  2. BIPERIDEN HYDROCHLORIDE TAB [Suspect]
     Route: 065
     Dates: end: 20091001
  3. RISPERIDONE [Concomitant]
     Indication: SCHIZOPHRENIA
     Dosage: UP TO 8 MG/DAY
  4. CLONAZEPAM [Concomitant]
     Indication: SCHIZOPHRENIA
     Dosage: UP TO 4 MG/DAY
  5. BIPERIDEN HYDROCHLORIDE TAB [Suspect]
     Indication: PSYCHOTIC DISORDER
     Route: 065
     Dates: start: 20090701, end: 20091001
  6. OLANZAPINE [Concomitant]

REACTIONS (1)
  - TARDIVE DYSKINESIA [None]
